FAERS Safety Report 4622325-7 (Version None)
Quarter: 2005Q1

REPORT INFORMATION
  Report Type: 
  Country: None (occurrence: None)
  Receive Date: 20050328
  Receipt Date: 20050314
  Transmission Date: 20050727
  Serious: Yes (Hospitalization)
  Sender: FDA-Public Use
  Company Number: 2005043843

PATIENT
  Age: 85 Year
  Sex: Female

DRUGS (18)
  1. NEURONTIN [Suspect]
     Indication: PAIN
     Dosage: 1800 MG (600 MG, 3 IN 1 D) ORAL
     Route: 048
  2. VALORON (TILIDINE) [Suspect]
     Indication: PAIN
     Dosage: 300 MG (75 MG, 4 IN 1 D) ORAL
     Route: 048
     Dates: start: 20050108, end: 20050110
  3. MORPHINE SULFATE [Suspect]
     Indication: PAIN
     Dosage: 20 MG (10 MG, 2 IN 1 D) ORAL
     Route: 048
     Dates: start: 20050109, end: 20050110
  4. TRIMIPRAMINE MALEATE [Suspect]
     Indication: ILL-DEFINED DISORDER
     Dosage: 25 MG (25 MG, 1 IN 1 D) ORAL
     Route: 048
     Dates: start: 20050109, end: 20050110
  5. METOPROLOL SUCCINATE [Suspect]
     Indication: MYOCARDIAL ISCHAEMIA
     Dosage: 100 MG (100 MG, 1 IN 1 D) ORAL
     Route: 048
  6. LANSOPRAZOLE [Suspect]
     Indication: ILL-DEFINED DISORDER
     Dosage: 30 MG (30 MG, 1 IN 1 D) ORAL
     Route: 048
  7. PHENPROCOUMON [Concomitant]
  8. RAMIPRIL [Concomitant]
  9. AMLODIPINE BESYLATE [Concomitant]
  10. PRAVSTATIN SODIUM [Concomitant]
  11. MOLSIDOMINE [Concomitant]
  12. PARACETAMOL [Concomitant]
  13. CALCIUM D3 ^STADA^ (CALCIUM, COLECALCIFEROL) [Concomitant]
  14. ALENDRONATE SODIUM [Concomitant]
  15. GLYCERYL TRINITRATE [Concomitant]
  16. TORSEMIDE [Concomitant]
  17. PREDNISONE TAB [Concomitant]
  18. HEPARIN [Concomitant]

REACTIONS (4)
  - HERPES ZOSTER [None]
  - MENINGITIS [None]
  - NEURALGIA [None]
  - STUPOR [None]
